FAERS Safety Report 24841074 (Version 6)
Quarter: 2025Q1

REPORT INFORMATION
  Report Type: Spontaneous
  Country: US (occurrence: US)
  Receive Date: 20250114
  Receipt Date: 20250320
  Transmission Date: 20250409
  Serious: Yes (Other)
  Sender: ALCON
  Company Number: US-ALCON LABORATORIES-ALC2025US000510

PATIENT
  Age: 17 Year
  Sex: Female

DRUGS (1)
  1. SYSTANE ULTRA [Suspect]
     Active Substance: POLYETHYLENE GLYCOL 400\PROPYLENE GLYCOL
     Indication: Dry eye
     Route: 047
     Dates: end: 20241229

REACTIONS (4)
  - Mycotic corneal ulcer [Recovered/Resolved]
  - Ulcerative keratitis [Recovering/Resolving]
  - Recalled product administered [Unknown]
  - Dry eye [Unknown]

NARRATIVE: CASE EVENT DATE: 20241227
